FAERS Safety Report 7790650-7 (Version None)
Quarter: 2011Q3

REPORT INFORMATION
  Report Type: 
  Country: None (occurrence: None)
  Receive Date: 20110930
  Receipt Date: 20110922
  Transmission Date: 20111222
  Serious: Yes (Hospitalization)
  Sender: FDA-Public Use
  Company Number: US-B.I. PHARMACEUTICALS,INC./RIDGEFIELD-2011-BP-21075BP

PATIENT
  Sex: Female
  Weight: 99.79 kg

DRUGS (6)
  1. PRILOSEC [Concomitant]
     Dates: start: 20100101
  2. COREG [Concomitant]
     Indication: HYPERTENSION
     Dates: start: 20100101
  3. LOTENSIN [Concomitant]
     Indication: HYPERTENSION
     Dosage: 20 MG
     Dates: start: 20100101
  4. PRANDIN [Concomitant]
     Indication: TYPE 2 DIABETES MELLITUS
     Dates: start: 20100101
  5. TRADJENTA [Suspect]
     Indication: TYPE 2 DIABETES MELLITUS
     Dosage: 5 MG
     Dates: start: 20110815, end: 20110909
  6. K+ [Concomitant]
     Indication: HYPOKALAEMIA
     Dates: start: 20100101

REACTIONS (1)
  - VASCULITIS [None]
